FAERS Safety Report 13590289 (Version 1)
Quarter: 2017Q2

REPORT INFORMATION
  Report Type: Spontaneous
  Country: US (occurrence: US)
  Receive Date: 20170529
  Receipt Date: 20170529
  Transmission Date: 20170830
  Serious: Yes (Disabling)
  Sender: FDA-Public Use
  Company Number: None

PATIENT
  Age: 74 Year
  Sex: Female
  Weight: 71.1 kg

DRUGS (22)
  1. AUBAGIO [Suspect]
     Active Substance: TERIFLUNOMIDE
     Indication: MULTIPLE SCLEROSIS
     Dosage: ?          QUANTITY:28 TABLET(S);?
     Route: 048
     Dates: start: 20161023, end: 20170103
  2. AMPYRA [Concomitant]
     Active Substance: DALFAMPRIDINE
  3. LATANOPROST SOL [Concomitant]
  4. SERTRALINE [Concomitant]
     Active Substance: SERTRALINE HYDROCHLORIDE
  5. SYSTAINE [Concomitant]
  6. BACLOFEN. [Concomitant]
     Active Substance: BACLOFEN
  7. GABAPENTIN. [Concomitant]
     Active Substance: GABAPENTIN
  8. CALTRATE [Concomitant]
     Active Substance: CALCIUM CARBONATE
  9. VITAMIN B12 [Concomitant]
     Active Substance: CYANOCOBALAMIN
  10. COPAXONE [Concomitant]
     Active Substance: GLATIRAMER ACETATE
  11. CELECOXIB. [Concomitant]
     Active Substance: CELECOXIB
  12. PANTOPRAZOLE [Concomitant]
     Active Substance: PANTOPRAZOLE
  13. PRAVASTATIN. [Concomitant]
     Active Substance: PRAVASTATIN
  14. METAMUCIL [Concomitant]
     Active Substance: PLANTAGO SEED
  15. VITAMIN C [Concomitant]
     Active Substance: ASCORBIC ACID
  16. MODAFINIL. [Concomitant]
     Active Substance: MODAFINIL
  17. RANITIDINE. [Concomitant]
     Active Substance: RANITIDINE
  18. LEVOTHYROXIN [Concomitant]
     Active Substance: LEVOTHYROXINE
  19. ZENPEP [Concomitant]
     Active Substance: PANCRELIPASE AMYLASE\PANCRELIPASE LIPASE\PANCRELIPASE PROTEASE
  20. ASPIRIN. [Concomitant]
     Active Substance: ASPIRIN
  21. FISH OIL [Concomitant]
     Active Substance: FISH OIL
  22. VITAMIN D3 [Concomitant]
     Active Substance: CHOLECALCIFEROL

REACTIONS (5)
  - Neuralgia [None]
  - Gastrointestinal pain [None]
  - Weight decreased [None]
  - Pain [None]
  - Pancreatitis [None]

NARRATIVE: CASE EVENT DATE: 20161023
